FAERS Safety Report 11086609 (Version 1)
Quarter: 2015Q2

REPORT INFORMATION
  Report Type: Spontaneous
  Country: US (occurrence: None)
  Receive Date: 20150501
  Receipt Date: 20150501
  Transmission Date: 20150821
  Serious: Yes (Other)
  Sender: FDA-Public Use
  Company Number: None

PATIENT
  Sex: Female

DRUGS (2)
  1. NTG AGE INTEN DEEP WRINKLE MOIST NIGHT [Suspect]
     Active Substance: COSMETICS
     Route: 061
  2. NTG AGE INTEN DEEP WRINKLE SERUM [Suspect]
     Active Substance: COSMETICS
     Route: 061

REACTIONS (2)
  - Erythema [None]
  - Blood pressure increased [None]
